FAERS Safety Report 8445003-5 (Version None)
Quarter: 2012Q2

REPORT INFORMATION
  Report Type: 
  Country: None (occurrence: None)
  Receive Date: 20120618
  Receipt Date: 20120606
  Transmission Date: 20120825
  Serious: Yes (Other)
  Sender: FDA-Public Use
  Company Number: AU-JNJFOC-20120604348

PATIENT
  Sex: Female

DRUGS (1)
  1. RISPERIDONE [Suspect]
     Indication: PRODUCT USED FOR UNKNOWN INDICATION
     Route: 030
     Dates: start: 20070101, end: 20090101

REACTIONS (7)
  - DYSPNOEA [None]
  - SOMNOLENCE [None]
  - BEDRIDDEN [None]
  - MOOD SWINGS [None]
  - NAUSEA [None]
  - CARDIAC MURMUR [None]
  - WEIGHT INCREASED [None]
